FAERS Safety Report 23682803 (Version 1)
Quarter: 2024Q1

REPORT INFORMATION
  Report Type: Spontaneous
  Country: US (occurrence: US)
  Receive Date: 20240328
  Receipt Date: 20240328
  Transmission Date: 20240410
  Serious: No
  Sender: FDA-Public Use
  Company Number: US-TAKEDA-2024TUS026326

PATIENT
  Age: 63 Year
  Sex: Female

DRUGS (1)
  1. MOTEGRITY [Suspect]
     Active Substance: PRUCALOPRIDE SUCCINATE
     Indication: Constipation
     Dosage: 2 MILLIGRAM, QD
     Route: 065
     Dates: start: 202401

REACTIONS (5)
  - Insurance issue [Unknown]
  - Constipation [Unknown]
  - Abdominal pain upper [Unknown]
  - Inability to afford medication [Unknown]
  - Product dose omission issue [Unknown]
